FAERS Safety Report 19067705 (Version 3)
Quarter: 2021Q3

REPORT INFORMATION
  Report Type: Report from Study
  Country: AU (occurrence: AU)
  Receive Date: 20210329
  Receipt Date: 20210712
  Transmission Date: 20211014
  Serious: Yes (Other)
  Sender: FDA-Public Use
  Company Number: AU-TAKEDA-2020TUS041496

PATIENT
  Sex: Male

DRUGS (13)
  1. CANDESARTAN CILEXETIL. [Concomitant]
     Active Substance: CANDESARTAN CILEXETIL
     Dosage: 4 MILLIGRAM, QD
  2. CANNABIS SATIVA OIL [Concomitant]
     Active Substance: CANNABIS SATIVA SUBSP. INDICA TOP
     Dosage: 0.3 MILLILITER, BID
  3. PANTOPRAZOLE AN [Concomitant]
     Dosage: 40 MILLIGRAM, QD
  4. PRAVASTATIN ACTAVIS [Concomitant]
     Dosage: 20 MILLIGRAM, QD
  5. CLOPIDOGREL [Concomitant]
     Active Substance: CLOPIDOGREL BISULFATE
     Dosage: UNK UNK, QD
  6. COENZYME Q10 [Concomitant]
     Active Substance: DIETARY SUPPLEMENT\UBIDECARENONE
     Dosage: UNK UNK, QD
  7. EZETIMIBE. [Concomitant]
     Active Substance: EZETIMIBE
     Dosage: 10 MILLIGRAM, QD
  8. OSTEVIT?D [Concomitant]
     Dosage: 25 MICROGRAM, QD
  9. VERAPAMIL HYDROCHLORIDE. [Concomitant]
     Active Substance: VERAPAMIL HYDROCHLORIDE
     Dosage: 180 MILLIGRAM, QD
  10. SODIUM CHLORIDE. [Concomitant]
     Active Substance: SODIUM CHLORIDE
     Dosage: 1000 MILLILITER
  11. VEDOLIZUMAB [Suspect]
     Active Substance: VEDOLIZUMAB
     Indication: COLITIS ULCERATIVE
     Dosage: 300 MILLIGRAM
     Route: 042
     Dates: start: 20200918
  12. HYDROXO B12 [Concomitant]
     Dosage: 1000 MICROGRAM, Q3MONTHS
  13. PRIMIDONE. [Concomitant]
     Active Substance: PRIMIDONE
     Dosage: 250 MILLIGRAM, QD

REACTIONS (6)
  - Fall [Unknown]
  - Upper limb fracture [Unknown]
  - Arthralgia [Unknown]
  - Frequent bowel movements [Not Recovered/Not Resolved]
  - Haematochezia [Not Recovered/Not Resolved]
  - Vision blurred [Unknown]
